FAERS Safety Report 4610808-5 (Version None)
Quarter: 2005Q2

REPORT INFORMATION
  Report Type: 
  Country: None (occurrence: None)
  Receive Date: 20050223
  Receipt Date: 20040225
  Transmission Date: 20051028
  Serious: Yes (Hospitalization)
  Sender: FDA-Public Use
  Company Number: WAES 0402USA01895

PATIENT
  Age: 75 Year
  Sex: Female

DRUGS (6)
  1. ZOCOR [Suspect]
     Dosage: 80MG/DAILY/PO,  60 MG/ DAILY / PO
     Route: 048
  2. AVAPRO [Concomitant]
  3. AZMACORT [Concomitant]
  4. GLUCOTROL [Concomitant]
  5. LASIX [Concomitant]
  6. TOPROL-XL [Concomitant]

REACTIONS (1)
  - RHABDOMYOLYSIS [None]
